FAERS Safety Report 19955488 (Version 1)
Quarter: 2021Q4

REPORT INFORMATION
  Report Type: Spontaneous
  Country: CN (occurrence: CN)
  Receive Date: 20211013
  Receipt Date: 20211013
  Transmission Date: 20220303
  Serious: Yes (Hospitalization)
  Sender: FDA-Public Use
  Company Number: CN-BAXTER-2021BAX026673

PATIENT
  Age: 8 Year
  Sex: Male
  Weight: 45 kg

DRUGS (9)
  1. CYCLOPHOSPHAMIDE [Suspect]
     Active Substance: CYCLOPHOSPHAMIDE
     Indication: Brain neoplasm malignant
     Dosage: INTRAVENOUS DRIP OF NS 250ML+ CYCLOPHOSPHAMIDE FOR INJECTION 720MG, QD
     Route: 041
     Dates: start: 20210621, end: 20210622
  2. CYCLOPHOSPHAMIDE [Suspect]
     Active Substance: CYCLOPHOSPHAMIDE
     Dosage: DOSE REINTRODUCED.
     Route: 041
  3. SODIUM CHLORIDE [Suspect]
     Active Substance: SODIUM CHLORIDE
     Indication: Medication dilution
     Dosage: DILUENT WITH CYCLOPHOSPHAMIDE
     Route: 041
     Dates: start: 20210621, end: 20210622
  4. SODIUM CHLORIDE [Suspect]
     Active Substance: SODIUM CHLORIDE
     Dosage: DILUENT WITH VINCRISTINE SULFATE
     Route: 042
     Dates: start: 20210621, end: 20210629
  5. SODIUM CHLORIDE [Suspect]
     Active Substance: SODIUM CHLORIDE
     Dosage: DILUENT WITH CISPLATIN FOR INJECTION (LYOPHILIZED TYPE)
     Route: 041
     Dates: start: 20210621, end: 20210621
  6. VINCRISTINE SULFATE [Suspect]
     Active Substance: VINCRISTINE SULFATE
     Indication: Brain neoplasm malignant
     Dosage: INTRAVENOUS INJECTION OF NS 20ML+VINCRISTINE SULFATE FOR INJECTION 1.4MG, Q7D
     Route: 042
     Dates: start: 20210621, end: 20210629
  7. VINCRISTINE SULFATE [Suspect]
     Active Substance: VINCRISTINE SULFATE
     Dosage: DOSE REINTRODUCED.
     Route: 042
  8. CISPLATIN [Suspect]
     Active Substance: CISPLATIN
     Indication: Brain neoplasm malignant
     Dosage: NS 250ML+ CISPLATIN FOR INJECTION (LYOPHILIZED TYPE) 70MG, QD
     Route: 041
     Dates: start: 20210621, end: 20210621
  9. CISPLATIN [Suspect]
     Active Substance: CISPLATIN
     Dosage: DOSE REINTRODUCED.
     Route: 041

REACTIONS (2)
  - White blood cell count decreased [Recovered/Resolved]
  - Platelet count decreased [Recovered/Resolved]

NARRATIVE: CASE EVENT DATE: 20210630
